FAERS Safety Report 21362647 (Version 1)
Quarter: 2022Q3

REPORT INFORMATION
  Report Type: Report from Study
  Country: US (occurrence: US)
  Receive Date: 20220922
  Receipt Date: 20220922
  Transmission Date: 20221027
  Serious: No
  Sender: FDA-Public Use
  Company Number: US-NOVARTISTESTPH-NVSC2022US213730

PATIENT
  Sex: Female

DRUGS (1)
  1. KESIMPTA [Suspect]
     Active Substance: OFATUMUMAB
     Indication: Product used for unknown indication
     Dosage: 20 MG
     Route: 058
     Dates: start: 20220323

REACTIONS (6)
  - Confusional state [Unknown]
  - Chromaturia [Unknown]
  - Fatigue [Unknown]
  - Decreased appetite [Unknown]
  - Balance disorder [Unknown]
  - Eye disorder [Unknown]
